FAERS Safety Report 18908338 (Version 2)
Quarter: 2021Q2

REPORT INFORMATION
  Report Type: Spontaneous
  Country: GB (occurrence: GB)
  Receive Date: 20210218
  Receipt Date: 20210422
  Transmission Date: 20210717
  Serious: Yes (Other)
  Sender: FDA-Public Use
  Company Number: GB-009507513-2102GBR005321

PATIENT
  Sex: Female

DRUGS (1)
  1. NEXPLANON [Suspect]
     Active Substance: ETONOGESTREL
     Indication: CONTRACEPTION
     Dosage: 1 IMPLANT
     Route: 059

REACTIONS (6)
  - Polymenorrhoea [Unknown]
  - Balance disorder [Unknown]
  - Bipolar disorder [Unknown]
  - Emotional disorder [Unknown]
  - Depression [Unknown]
  - Anxiety [Unknown]
